FAERS Safety Report 7320752-0 (Version None)
Quarter: 2011Q1

REPORT INFORMATION
  Report Type: 
  Country: None (occurrence: None)
  Receive Date: 20110228
  Receipt Date: 20110216
  Transmission Date: 20110831
  Serious: Yes (Hospitalization, Disabling, Other)
  Sender: FDA-Public Use
  Company Number: US-ELI_LILLY_AND_COMPANY-US201101003776

PATIENT
  Age: 45 Year
  Sex: Female
  Weight: 83.9 kg

DRUGS (6)
  1. FORTEO [Suspect]
     Dosage: 20 UG, AS NEEDED
     Dates: start: 20110211
  2. TRAMADOL HCL [Concomitant]
  3. FORTEO [Suspect]
     Indication: OSTEOPOROSIS
     Dosage: 20 UG, DAILY (1/D)
     Dates: end: 20110103
  4. PREDNISONE [Concomitant]
  5. PRILOSEC [Concomitant]
  6. INDOMETHACIN [Concomitant]

REACTIONS (1)
  - FEMUR FRACTURE [None]
